FAERS Safety Report 20975254 (Version 1)
Quarter: 2022Q2

REPORT INFORMATION
  Report Type: Spontaneous
  Country: GB (occurrence: GB)
  Receive Date: 20220617
  Receipt Date: 20220617
  Transmission Date: 20220721
  Serious: Yes (Other)
  Sender: FDA-Public Use
  Company Number: GB-TEVA-2022-GB-2043765

PATIENT
  Age: 84 Year
  Sex: Male

DRUGS (2)
  1. COLESEVELAM [Suspect]
     Active Substance: COLESEVELAM
     Indication: Product used for unknown indication
     Dosage: 625 MILLIGRAM DAILY;
     Route: 065
     Dates: start: 20220407
  2. OCTREOTIDE [Suspect]
     Active Substance: OCTREOTIDE
     Indication: Product used for unknown indication
     Dosage: DATE OF LAST ADMINISTRATION: 10-MAY-2022
     Route: 065
     Dates: end: 20220510

REACTIONS (1)
  - Heart valve incompetence [Unknown]
